FAERS Safety Report 17604120 (Version 3)
Quarter: 2020Q3

REPORT INFORMATION
  Report Type: Report from Study
  Country: None (occurrence: US)
  Receive Date: 20200331
  Receipt Date: 20200905
  Transmission Date: 20201102
  Serious: Yes (Hospitalization, Other)
  Sender: FDA-Public Use
  Company Number: US-ABBVIE-20K-163-3344057-00

PATIENT
  Sex: Female
  Weight: 106.69 kg

DRUGS (6)
  1. SULFASALAZINE. [Concomitant]
     Active Substance: SULFASALAZINE
     Indication: RHEUMATOID ARTHRITIS
  2. OMEPRAZOLE. [Concomitant]
     Active Substance: OMEPRAZOLE
     Indication: GASTROOESOPHAGEAL REFLUX DISEASE
  3. FOLIC ACID. [Concomitant]
     Active Substance: FOLIC ACID
     Indication: RHEUMATOID ARTHRITIS
  4. LABETALOL [Concomitant]
     Active Substance: LABETALOL\LABETALOL HYDROCHLORIDE
     Indication: HYPERTENSION
  5. HUMIRA [Suspect]
     Active Substance: ADALIMUMAB
     Indication: RHEUMATOID ARTHRITIS
     Route: 058
     Dates: start: 201908
  6. HUMIRA [Suspect]
     Active Substance: ADALIMUMAB
     Indication: RHEUMATOID ARTHRITIS
     Dosage: CITRATE FREE
     Route: 058

REACTIONS (9)
  - Intestinal perforation [Recovered/Resolved]
  - Post procedural complication [Unknown]
  - Uterine enlargement [Recovered/Resolved]
  - Back pain [Not Recovered/Not Resolved]
  - Diverticulitis [Recovered/Resolved]
  - Oropharyngeal pain [Recovered/Resolved with Sequelae]
  - Menorrhagia [Recovered/Resolved]
  - Pharyngeal swelling [Recovered/Resolved with Sequelae]
  - Uterine cyst [Recovered/Resolved]
